FAERS Safety Report 24904274 (Version 1)
Quarter: 2025Q1

REPORT INFORMATION
  Report Type: Spontaneous
  Country: GB (occurrence: GB)
  Receive Date: 20250130
  Receipt Date: 20250130
  Transmission Date: 20250409
  Serious: Yes (Disabling)
  Sender: Unknown Manufacturer
  Company Number: None

PATIENT
  Sex: Female

DRUGS (1)
  1. SIMVASTATIN [Suspect]
     Active Substance: SIMVASTATIN
     Indication: Product used for unknown indication
     Dosage: 10 MG ONCE AT NIGHT
     Dates: start: 20240601, end: 20241119

REACTIONS (1)
  - Tendonitis [Recovering/Resolving]

NARRATIVE: CASE EVENT DATE: 20240601
